FAERS Safety Report 20786814 (Version 1)
Quarter: 2022Q2

REPORT INFORMATION
  Report Type: Spontaneous
  Country: US (occurrence: US)
  Receive Date: 20220505
  Receipt Date: 20220505
  Transmission Date: 20220721
  Serious: Yes (Other)
  Sender: FDA-Public Use
  Company Number: US-LUPIN PHARMACEUTICALS INC.-2022-06453

PATIENT
  Age: 4 Month
  Sex: Female
  Weight: 5.5 kg

DRUGS (10)
  1. CALCIUM [Suspect]
     Active Substance: CALCIUM
     Indication: Hypoparathyroidism
     Dosage: 840MG BY G-TUBE FIVE TIMES DAILY (~760 MG/KG/DAY ELEMENTAL CALCIUM)
     Route: 065
  2. CALCIUM [Suspect]
     Active Substance: CALCIUM
     Dosage: 320 MG, TID
     Route: 065
  3. CALCIUM [Suspect]
     Active Substance: CALCIUM
     Dosage: 380 MG, TID
     Route: 065
  4. CHOLECALCIFEROL [Suspect]
     Active Substance: CHOLECALCIFEROL
     Indication: Hypoparathyroidism
     Dosage: 1000 UNIT, QD BY G-TUBE DAILY
     Route: 065
  5. CALCITRIOL [Suspect]
     Active Substance: CALCITRIOL
     Indication: Hypoparathyroidism
     Dosage: 1 MICROGRAM
     Route: 065
  6. SEVELAMER CARBONATE [Concomitant]
     Active Substance: SEVELAMER CARBONATE
     Indication: Hyperphosphataemia
     Dosage: UNK
     Route: 065
  7. TERIPARATIDE [Concomitant]
     Active Substance: TERIPARATIDE
     Indication: Hypoparathyroidism
     Dosage: 40MCG/ML
     Route: 058
  8. TERIPARATIDE [Concomitant]
     Active Substance: TERIPARATIDE
     Indication: Hyperphosphataemia
     Dosage: 0.4MCG/KG ON DAY 14 OF THERAPY
     Route: 058
  9. TERIPARATIDE [Concomitant]
     Active Substance: TERIPARATIDE
     Dosage: 0.6 MCG/KG ON DAY 18 OF THERAPY
     Route: 058
  10. TERIPARATIDE [Concomitant]
     Active Substance: TERIPARATIDE
     Dosage: 0.7MCG/KG ON DAY28 OF THERAPY
     Route: 058

REACTIONS (1)
  - Drug ineffective [Unknown]
